FAERS Safety Report 18335337 (Version 4)
Quarter: 2023Q1

REPORT INFORMATION
  Report Type: Report from Study
  Country: AR (occurrence: AR)
  Receive Date: 20201001
  Receipt Date: 20230301
  Transmission Date: 20230418
  Serious: Yes (Hospitalization)
  Sender: FDA-Public Use
  Company Number: PHHY2019AR073717

PATIENT
  Age: 62 Year
  Sex: Male

DRUGS (3)
  1. COSENTYX [Suspect]
     Active Substance: SECUKINUMAB
     Indication: Psoriasis
     Dosage: 300 MG, Q2MO
     Route: 058
     Dates: start: 20170407
  2. COSENTYX [Suspect]
     Active Substance: SECUKINUMAB
     Dosage: 300 MG, Q2MO
     Route: 058
     Dates: start: 20200922
  3. COSENTYX [Suspect]
     Active Substance: SECUKINUMAB
     Dosage: 300 MG, QMO
     Route: 058
     Dates: start: 20210101

REACTIONS (8)
  - COVID-19 [Recovered/Resolved]
  - COVID-19 [Recovered/Resolved]
  - Psoriasis [Unknown]
  - Malaise [Unknown]
  - Pruritus [Unknown]
  - Erythema [Unknown]
  - Incorrect dose administered [Not Recovered/Not Resolved]
  - Inappropriate schedule of product administration [Unknown]

NARRATIVE: CASE EVENT DATE: 20200601
